FAERS Safety Report 6111238-X (Version None)
Quarter: 2009Q1

REPORT INFORMATION
  Report Type: 
  Country: None (occurrence: None)
  Receive Date: 20090311
  Receipt Date: 20090310
  Transmission Date: 20090719
  Serious: Yes (Death)
  Sender: FDA-Public Use
  Company Number: PHEH2008US10220

PATIENT
  Sex: Male
  Weight: 95.692 kg

DRUGS (5)
  1. EXJADE [Suspect]
     Indication: IRON OVERLOAD
     Dosage: 500 MG, QID
     Route: 048
     Dates: start: 20080523, end: 20080818
  2. EXJADE [Suspect]
     Indication: MYELODYSPLASTIC SYNDROME
  3. ARANESP [Concomitant]
     Dosage: 200 MG, UNK
     Route: 058
  4. DECITABINE [Concomitant]
     Dosage: 15 MG, UNK
     Route: 048
     Dates: start: 20080331
  5. NEUPOGEN [Concomitant]

REACTIONS (2)
  - ESCHERICHIA SEPSIS [None]
  - SEPTIC SHOCK [None]
